FAERS Safety Report 6739365-4 (Version None)
Quarter: 2010Q2

REPORT INFORMATION
  Report Type: 
  Country: None (occurrence: None)
  Receive Date: 20100525
  Receipt Date: 20100517
  Transmission Date: 20101027
  Serious: Yes (Other)
  Sender: FDA-Public Use
  Company Number: FR-ALEXION-A201000570

PATIENT

DRUGS (8)
  1. SOLIRIS [Suspect]
     Indication: PAROXYSMAL NOCTURNAL HAEMOGLOBINURIA
     Dosage: 600 MG, QW
     Route: 042
     Dates: start: 20080709
  2. SOLIRIS [Suspect]
     Dosage: 900 MG, Q2W
     Route: 042
  3. SOLIRIS [Suspect]
     Dosage: 900 MG, Q15D
  4. NEORAL [Concomitant]
     Indication: PAROXYSMAL NOCTURNAL HAEMOGLOBINURIA
     Dosage: 100 MG, UNK
     Route: 048
     Dates: start: 20070501
  5. PREVISCAN                          /00261401/ [Concomitant]
     Dosage: 20 MG, UNK
     Route: 048
     Dates: start: 20090101
  6. NEORECORMON [Concomitant]
     Dosage: UNK
     Route: 058
     Dates: start: 20090101
  7. INIPOMP                            /01263201/ [Concomitant]
     Dosage: 20 MG, UNK
     Route: 048
     Dates: start: 20090101
  8. SERETIDE DISCUS [Concomitant]
     Dosage: 250/50 UG, INHALATION
     Dates: start: 20090101

REACTIONS (1)
  - FIBROADENOMA OF BREAST [None]
